FAERS Safety Report 6735433-1 (Version None)
Quarter: 2010Q2

REPORT INFORMATION
  Report Type: 
  Country: None (occurrence: None)
  Receive Date: 20100521
  Receipt Date: 20100511
  Transmission Date: 20101027
  Serious: Yes (Hospitalization)
  Sender: FDA-Public Use
  Company Number: PHHO2010DE06416

PATIENT
  Sex: Female
  Weight: 80 kg

DRUGS (6)
  1. BLINDED AIN457 AIN++UV [Suspect]
     Indication: BEHCET'S SYNDROME
     Dosage: DOUBLE BLIND
     Route: 058
     Dates: start: 20100201, end: 20100416
  2. BLINDED NO TREATMENT RECEIVED NOMED [Suspect]
     Indication: BEHCET'S SYNDROME
     Dosage: DOUBLE BLIND
     Route: 058
     Dates: start: 20100201, end: 20100416
  3. BLINDED PLACEBO COMP-PLA+ [Suspect]
     Indication: BEHCET'S SYNDROME
     Dosage: DOUBLE BLIND
     Route: 058
     Dates: start: 20100201, end: 20100416
  4. CYCLOSPORINE [Suspect]
     Indication: BEHCET'S SYNDROME
     Dosage: 125 MG, TWICE DAILY
     Route: 048
     Dates: start: 20070101, end: 20100412
  5. PREDNISOLONE [Suspect]
     Indication: BEHCET'S SYNDROME
     Dosage: 5 MG, ONCE DAILY
     Route: 048
     Dates: start: 20100119
  6. AMLODIPINE MALEATE [Concomitant]
     Indication: HYPERTENSION
     Dosage: 5 MG, ONCE DAILY
     Route: 048
     Dates: start: 20100310

REACTIONS (2)
  - FOLLICULITIS [None]
  - PYREXIA [None]
